FAERS Safety Report 15351942 (Version 3)
Quarter: 2018Q4

REPORT INFORMATION
  Report Type: Spontaneous
  Country: US (occurrence: US)
  Receive Date: 20180905
  Receipt Date: 20181221
  Transmission Date: 20190204
  Serious: No
  Sender: FDA-Public Use
  Company Number: US-ASTRAZENECA-2018SF03856

PATIENT
  Age: 70 Year
  Sex: Female
  Weight: 79.4 kg

DRUGS (28)
  1. FASENRA [Suspect]
     Active Substance: BENRALIZUMAB
     Indication: ASTHMA
     Dosage: UNKNOWN DOSE
     Route: 058
     Dates: start: 20180615
  2. HYDROCODONE [Concomitant]
     Active Substance: HYDROCODONE
  3. FLEXERIL [Concomitant]
     Active Substance: CYCLOBENZAPRINE HYDROCHLORIDE
  4. LOSARTAN. [Concomitant]
     Active Substance: LOSARTAN
  5. SINGULAIR [Concomitant]
     Active Substance: MONTELUKAST SODIUM
  6. KEFLEX [Concomitant]
     Active Substance: CEPHALEXIN
  7. METFORMIN [Concomitant]
     Active Substance: METFORMIN HYDROCHLORIDE
  8. PNEUMOVAX 23 [Concomitant]
     Active Substance: PNEUMOCOCCAL VACCINE, POLYVALENT 23
  9. FASENRA [Suspect]
     Active Substance: BENRALIZUMAB
     Indication: ASTHMA
     Route: 058
  10. CECLOR [Concomitant]
     Active Substance: CEFACLOR
  11. BENETHAMINE PENICILLIN [Concomitant]
     Active Substance: BENETHAMINE PENICILLIN
  12. FLONASE [Concomitant]
     Active Substance: FLUTICASONE PROPIONATE
  13. AMLODIPINE [Concomitant]
     Active Substance: AMLODIPINE BESYLATE
  14. REPATHA [Concomitant]
     Active Substance: EVOLOCUMAB
  15. TRAMADOL. [Concomitant]
     Active Substance: TRAMADOL
  16. VICTOZA [Concomitant]
     Active Substance: LIRAGLUTIDE
  17. BYDUREON [Suspect]
     Active Substance: EXENATIDE
     Dosage: UNKNOWN
     Route: 065
  18. DALIRESP [Suspect]
     Active Substance: ROFLUMILAST
     Route: 048
  19. SYMBICORT [Concomitant]
     Active Substance: BUDESONIDE\FORMOTEROL FUMARATE DIHYDRATE
  20. FASENRA [Suspect]
     Active Substance: BENRALIZUMAB
     Indication: ASTHMA
     Route: 058
  21. SYMBICORT [Suspect]
     Active Substance: BUDESONIDE\FORMOTEROL FUMARATE DIHYDRATE
     Dosage: 2 PUFFS 3 TIMES DAILY 10 DAYS THEN TWICE DAILY
     Route: 055
  22. IPRATROPIUM BROMIDE. [Concomitant]
     Active Substance: IPRATROPIUM BROMIDE
  23. OMEPRAZOLE. [Suspect]
     Active Substance: OMEPRAZOLE
     Route: 048
  24. CEPHALOSPORIN C [Concomitant]
     Active Substance: CEPHALOSPORIN C
  25. OMEPRAZOLE. [Concomitant]
     Active Substance: OMEPRAZOLE
  26. GEMFIBROZIL. [Concomitant]
     Active Substance: GEMFIBROZIL
  27. MELOXICAM. [Concomitant]
     Active Substance: MELOXICAM
  28. PROLIA [Concomitant]
     Active Substance: DENOSUMAB

REACTIONS (5)
  - Drug hypersensitivity [Unknown]
  - Off label use [Unknown]
  - Influenza like illness [Unknown]
  - Malaise [Unknown]
  - Drug intolerance [Unknown]

NARRATIVE: CASE EVENT DATE: 20180606
